FAERS Safety Report 11832320 (Version 1)
Quarter: 2015Q4

REPORT INFORMATION
  Report Type: Report from Study
  Country: US (occurrence: US)
  Receive Date: 20151214
  Receipt Date: 20151214
  Transmission Date: 20160305
  Serious: Yes (Hospitalization)
  Sender: FDA-Public Use
  Company Number: US-PFIZER INC-2015436479

PATIENT

DRUGS (2)
  1. ASA/APAP [Suspect]
     Active Substance: ACETAMINOPHEN\ASPIRIN
     Dosage: UNK, DAILY
  2. IBUPROFEN. [Suspect]
     Active Substance: IBUPROFEN
     Dosage: UNK, DAILY

REACTIONS (2)
  - Headache [Recovered/Resolved]
  - Overdose [Recovered/Resolved]
